FAERS Safety Report 7450249-9 (Version None)
Quarter: 2011Q2

REPORT INFORMATION
  Report Type: 
  Country: None (occurrence: None)
  Receive Date: 20110502
  Receipt Date: 20110426
  Transmission Date: 20111010
  Serious: Yes (Death, Life-Threatening, Hospitalization)
  Sender: FDA-Public Use
  Company Number: FR-SANOFI-AVENTIS-2011SA024765

PATIENT
  Age: 64 Year
  Sex: Male

DRUGS (5)
  1. CHRONADALATE [Concomitant]
     Route: 048
     Dates: end: 20110111
  2. KARDEGIC [Concomitant]
     Route: 048
     Dates: end: 20110111
  3. DANATROL [Suspect]
     Indication: IDIOPATHIC THROMBOCYTOPENIC PURPURA
     Route: 048
     Dates: start: 20100901, end: 20101201
  4. CORTANCYL [Concomitant]
     Indication: IDIOPATHIC THROMBOCYTOPENIC PURPURA
     Route: 048
     Dates: end: 20110111
  5. FORTZAAR [Concomitant]
     Route: 048
     Dates: end: 20110111

REACTIONS (3)
  - DRUG INEFFECTIVE [None]
  - LUNG DISORDER [None]
  - DYSPNOEA [None]
